FAERS Safety Report 6099049-5 (Version None)
Quarter: 2009Q1

REPORT INFORMATION
  Report Type: 
  Country: None (occurrence: None)
  Receive Date: 20090302
  Receipt Date: 20090226
  Transmission Date: 20090719
  Serious: Yes (Other)
  Sender: FDA-Public Use
  Company Number: JP-BRISTOL-MYERS SQUIBB COMPANY-14518427

PATIENT
  Age: 7 Decade

DRUGS (3)
  1. KENACORT [Suspect]
     Route: 014
     Dates: start: 20090217, end: 20090217
  2. XYLOCAINE [Suspect]
     Route: 013
     Dates: start: 20090217, end: 20090217
  3. SODIUM HYALURONATE [Suspect]
     Route: 014
     Dates: start: 20090217, end: 20090217

REACTIONS (1)
  - ANAPHYLACTIC SHOCK [None]
